FAERS Safety Report 4416484-9 (Version None)
Quarter: 2004Q3

REPORT INFORMATION
  Report Type: 
  Country: None (occurrence: None)
  Receive Date: 20040730
  Receipt Date: 20040722
  Transmission Date: 20050211
  Serious: Yes (Other)
  Sender: FDA-Public Use
  Company Number: ZONI001474

PATIENT
  Age: 58 Year
  Sex: Female

DRUGS (1)
  1. ZONEGRAN [Suspect]
     Indication: DRUG USE FOR UNKNOWN INDICATION
     Dosage: ORAL
     Route: 048

REACTIONS (4)
  - ALOPECIA [None]
  - DYSURIA [None]
  - VAGINAL DISCHARGE [None]
  - WEIGHT DECREASED [None]
